FAERS Safety Report 5752820-9 (Version None)
Quarter: 2008Q2

REPORT INFORMATION
  Report Type: 
  Country: None (occurrence: None)
  Receive Date: 20080529
  Receipt Date: 20080519
  Transmission Date: 20081010
  Serious: Yes (Other)
  Sender: FDA-Public Use
  Company Number: US-PFIZER INC-2008043238

PATIENT
  Sex: Female
  Weight: 68.9 kg

DRUGS (6)
  1. DETROL LA [Suspect]
     Indication: URINE ANALYSIS ABNORMAL
  2. EVISTA [Concomitant]
  3. PRAVACHOL [Concomitant]
  4. MOBIC [Concomitant]
  5. VITAMINS [Concomitant]
  6. HERBAL PREPARATION [Concomitant]

REACTIONS (3)
  - BLADDER OPERATION [None]
  - DRY MOUTH [None]
  - STOMACH DISCOMFORT [None]
